FAERS Safety Report 15753128 (Version 1)
Quarter: 2018Q4

REPORT INFORMATION
  Report Type: Spontaneous
  Country: ES (occurrence: ES)
  Receive Date: 20181222
  Receipt Date: 20181222
  Transmission Date: 20190205
  Serious: Yes (Hospitalization, Other)
  Sender: FDA-Public Use
  Company Number: ES-VISTAPHARM, INC.-VER201812-000988

PATIENT
  Age: 46 Year
  Sex: Male

DRUGS (2)
  1. PHENYTOIN. [Suspect]
     Active Substance: PHENYTOIN
     Indication: GENERALISED TONIC-CLONIC SEIZURE
     Dosage: 1250 MG LOADING DOSE IN 250 ML 0.9% NACL INJECTION
     Route: 042
  2. PHENYTOIN. [Suspect]
     Active Substance: PHENYTOIN
     Dosage: 150 MG/8 HR AS A DRIP DILUTED IN 0.9% NACL 50 ML OVER 30-60 MINUTES
     Route: 042

REACTIONS (1)
  - Rhabdomyolysis [Recovered/Resolved]
